FAERS Safety Report 6370690-5 (Version None)
Quarter: 2009Q3

REPORT INFORMATION
  Report Type: 
  Country: None (occurrence: None)
  Receive Date: 20090923
  Receipt Date: 20070809
  Transmission Date: 20100115
  Serious: No
  Sender: FDA-Public Use
  Company Number: US-ASTRAZENECA-2006UW25314

PATIENT
  Age: 29 Year
  Sex: Male
  Weight: 74.8 kg

DRUGS (10)
  1. SEROQUEL [Suspect]
     Indication: SCHIZOPHRENIA
     Route: 048
     Dates: start: 20001201, end: 20060701
  2. SEROQUEL [Suspect]
     Indication: BIPOLAR DISORDER
     Route: 048
     Dates: start: 20001201, end: 20060701
  3. SEROQUEL [Suspect]
     Indication: DEPRESSION
     Route: 048
     Dates: start: 20001201, end: 20060701
  4. ABILIFY [Concomitant]
     Route: 065
  5. GEODON [Concomitant]
     Route: 065
  6. HALDOL [Concomitant]
     Route: 065
  7. NAVANE [Concomitant]
     Route: 065
  8. RISPERDAL [Concomitant]
     Route: 065
  9. THORAZINE [Concomitant]
     Route: 065
  10. ZYPREXA [Concomitant]
     Route: 065

REACTIONS (6)
  - BLOOD CHOLESTEROL INCREASED [None]
  - BLOOD TRIGLYCERIDES INCREASED [None]
  - CYST [None]
  - HYPERGLYCAEMIA [None]
  - OBESITY [None]
  - REMOVAL OF FOREIGN BODY [None]
